FAERS Safety Report 12501759 (Version 2)
Quarter: 2016Q3

REPORT INFORMATION
  Report Type: Spontaneous
  Country: DE (occurrence: DE)
  Receive Date: 20160627
  Receipt Date: 20160711
  Transmission Date: 20161109
  Serious: Yes (Other)
  Sender: FDA-Public Use
  Company Number: DE-BAYER-2016-125043

PATIENT

DRUGS (1)
  1. GADOVIST [Suspect]
     Active Substance: GADOBUTROL
     Dosage: 7 ML, ONCE
     Route: 064
     Dates: start: 201604

REACTIONS (2)
  - Deafness [None]
  - Foetal exposure during pregnancy [None]

NARRATIVE: CASE EVENT DATE: 201604
